FAERS Safety Report 23677971 (Version 1)
Quarter: 2024Q1

REPORT INFORMATION
  Report Type: Spontaneous
  Country: US (occurrence: US)
  Receive Date: 20240327
  Receipt Date: 20240327
  Transmission Date: 20240410
  Serious: No
  Sender: FDA-Public Use
  Company Number: US-TEVA-VS-3167159

PATIENT

DRUGS (2)
  1. VANDAZOLE [Suspect]
     Active Substance: METRONIDAZOLE
     Dosage: 0.75 %
     Route: 065
  2. ^MetroGel [Concomitant]
     Indication: Product used for unknown indication
     Route: 065

REACTIONS (3)
  - Expired product administered [Unknown]
  - Product prescribing error [Unknown]
  - Off label use [Unknown]
